FAERS Safety Report 14340405 (Version 1)
Quarter: 2018Q1

REPORT INFORMATION
  Report Type: Report from Study
  Country: US (occurrence: US)
  Receive Date: 20180101
  Receipt Date: 20180101
  Transmission Date: 20180509
  Serious: Yes (Hospitalization)
  Sender: FDA-Public Use
  Company Number: US-ARIAD PHARMACEUTICALS, INC-2017US008899

PATIENT
  Age: 61 Year
  Sex: Female

DRUGS (1)
  1. PONATINIB [Suspect]
     Active Substance: PONATINIB
     Indication: ACUTE LEUKAEMIA
     Dosage: 45 MG, QD
     Route: 048
     Dates: start: 20170830

REACTIONS (6)
  - Adverse drug reaction [Unknown]
  - Uveitis [Unknown]
  - Cranial nerve disorder [Not Recovered/Not Resolved]
  - Constipation [Unknown]
  - Dyspepsia [Unknown]
  - Fatigue [Unknown]

NARRATIVE: CASE EVENT DATE: 20171011
